FAERS Safety Report 15560937 (Version 1)
Quarter: 2018Q4

REPORT INFORMATION
  Report Type: Spontaneous
  Country: US (occurrence: US)
  Receive Date: 20181029
  Receipt Date: 20181029
  Transmission Date: 20190205
  Serious: Yes (Disabling, Other)
  Sender: FDA-Public Use
  Company Number: None

PATIENT
  Age: 24 Year
  Sex: Male
  Weight: 51.75 kg

DRUGS (2)
  1. VESICARE [Suspect]
     Active Substance: SOLIFENACIN SUCCINATE
     Indication: HYPERTONIC BLADDER
     Dosage: ?          QUANTITY:1 CAPSULE(S);?
     Route: 048
     Dates: start: 20100527, end: 20100704
  2. DITROPAN (OXYBUTIN) [Concomitant]

REACTIONS (3)
  - Vision blurred [None]
  - Sensory disturbance [None]
  - Nephrolithiasis [None]

NARRATIVE: CASE EVENT DATE: 20100604
